FAERS Safety Report 9715340 (Version 2)
Quarter: 2013Q4

REPORT INFORMATION
  Report Type: Spontaneous
  Country: JP (occurrence: JP)
  Receive Date: 20131127
  Receipt Date: 20131217
  Transmission Date: 20140711
  Serious: Yes (Death)
  Sender: FDA-Public Use
  Company Number: JP-ROCHE-1305593

PATIENT
  Age: 65 Year
  Sex: Male
  Weight: 69 kg

DRUGS (13)
  1. ACTEMRA [Suspect]
     Indication: RHEUMATOID ARTHRITIS
     Route: 041
     Dates: start: 20130830, end: 20130927
  2. LASIX [Concomitant]
     Indication: OEDEMA
     Dosage: DOSAGE IS UNCERTAIN.
     Route: 065
  3. MICARDIS [Concomitant]
     Indication: HYPERTENSION
     Dosage: DOSAGE IS UNCERTAIN.
     Route: 065
  4. ATELEC [Concomitant]
     Indication: HYPERTENSION
     Dosage: DOSAGE IS UNCERTAIN.
     Route: 065
  5. FEBURIC [Concomitant]
     Indication: HYPERURICAEMIA
     Dosage: DOSAGE IS UNCERTAIN.
     Route: 065
     Dates: start: 20130705
  6. TAKEPRON [Concomitant]
     Indication: PROPHYLAXIS AGAINST GASTROINTESTINAL ULCER
     Dosage: DOSAGE IS UNCERTAIN.
     Route: 065
  7. GLAKAY [Concomitant]
     Indication: OSTEOPOROSIS
     Dosage: DOSAGE IS UNCERTAIN.
     Route: 065
     Dates: start: 20100305
  8. BAKTAR [Concomitant]
     Indication: PROPHYLAXIS
     Dosage: DOSAGE IS UNCERTAIN.
     Route: 065
  9. BONALON [Concomitant]
     Indication: OSTEOPOROSIS
     Route: 048
  10. ISCOTIN [Concomitant]
     Indication: ANTIBIOTIC PROPHYLAXIS
     Route: 065
     Dates: start: 20130322
  11. NOVORAPID [Concomitant]
     Indication: DIABETES MELLITUS
     Dosage: 6-16-6 UNITS/DAY
     Route: 065
  12. PREDNISOLONE [Concomitant]
     Indication: RHEUMATOID ARTHRITIS
     Dosage: DOSAGE IS UNCERTAIN.
     Route: 065
  13. VOLTAREN [Concomitant]
     Indication: RHEUMATOID ARTHRITIS
     Dosage: FOR TON
     Route: 054

REACTIONS (2)
  - Cardio-respiratory arrest [Fatal]
  - Interstitial lung disease [Fatal]
